FAERS Safety Report 6627032-7 (Version None)
Quarter: 2010Q1

REPORT INFORMATION
  Report Type: 
  Country: None (occurrence: None)
  Receive Date: 20100311
  Receipt Date: 20100309
  Transmission Date: 20100710
  Serious: Yes (Death, Life-Threatening, Hospitalization, Other)
  Sender: FDA-Public Use
  Company Number: DE-ABBOTT-10P-062-0625526-00

PATIENT
  Age: 62 Year
  Sex: Male
  Weight: 96 kg

DRUGS (7)
  1. KLACID I.V. [Suspect]
     Indication: H1N1 INFLUENZA
     Route: 042
     Dates: start: 20091214, end: 20091218
  2. METOCLOPRAMIDE [Concomitant]
     Indication: GASTROINTESTINAL MOTILITY DISORDER
     Route: 048
     Dates: start: 20091213, end: 20091213
  3. METOCLOPRAMIDE [Concomitant]
     Dosage: 20-90
     Route: 042
     Dates: start: 20091213, end: 20091230
  4. OMEPRAZOLE [Concomitant]
     Indication: GASTRITIS PROPHYLAXIS
     Route: 048
     Dates: start: 20091213, end: 20091213
  5. ENOXAPARIN SODIUM [Concomitant]
     Indication: THROMBOSIS PROPHYLAXIS
     Dosage: 4000-9000 IU
     Route: 058
     Dates: start: 20091212, end: 20091214
  6. DIMENHYDRINATE [Concomitant]
     Indication: ANTIEMETIC SUPPORTIVE CARE
     Dosage: 62-93 MG
     Route: 042
     Dates: start: 20091213, end: 20091214
  7. ACETYLCYSTEINE [Concomitant]
     Indication: SPUTUM RETENTION
     Dosage: 2-3 X 300 MG DAILY
     Route: 042
     Dates: start: 20091213, end: 20091230

REACTIONS (4)
  - LONG QT SYNDROME [None]
  - MULTI-ORGAN FAILURE [None]
  - PULMONARY SEPSIS [None]
  - RESPIRATORY FAILURE [None]
